FAERS Safety Report 24253637 (Version 1)
Quarter: 2024Q3

REPORT INFORMATION
  Report Type: Spontaneous
  Country: US (occurrence: US)
  Receive Date: 20240827
  Receipt Date: 20240827
  Transmission Date: 20241017
  Serious: No
  Sender: ABBVIE
  Company Number: US-ABBVIE-5894448

PATIENT
  Sex: Female

DRUGS (1)
  1. BOTOX [Suspect]
     Active Substance: ONABOTULINUMTOXINA
     Indication: Migraine
     Dosage: FORM OF ADMIN: INJECTION, 155 UNIT
     Route: 065
     Dates: start: 2024, end: 2024

REACTIONS (1)
  - Brow ptosis [Unknown]

NARRATIVE: CASE EVENT DATE: 20240101
